FAERS Safety Report 8114894-X (Version None)
Quarter: 2012Q1

REPORT INFORMATION
  Report Type: 
  Country: None (occurrence: None)
  Receive Date: 20120206
  Receipt Date: 20120125
  Transmission Date: 20120608
  Serious: Yes (Other)
  Sender: FDA-Public Use
  Company Number: CA-JNJFOC-20120200875

PATIENT
  Sex: Male
  Weight: 88 kg

DRUGS (5)
  1. REMICADE [Suspect]
     Dosage: 3RD INFUSION
     Route: 042
     Dates: start: 20120125
  2. AZATHIOPRINE [Concomitant]
     Route: 065
  3. REMICADE [Suspect]
     Indication: CROHN'S DISEASE
     Route: 042
     Dates: start: 20111216
  4. VENLAFAXINE [Concomitant]
     Route: 065
  5. PANTOPRAZOLE [Concomitant]
     Route: 065

REACTIONS (5)
  - FLUSHING [None]
  - DYSARTHRIA [None]
  - RESTLESSNESS [None]
  - PRURITUS [None]
  - INFUSION RELATED REACTION [None]
